FAERS Safety Report 8329263-7 (Version None)
Quarter: 2012Q2

REPORT INFORMATION
  Report Type: 
  Country: None (occurrence: None)
  Receive Date: 20120502
  Receipt Date: 20120109
  Transmission Date: 20120825
  Serious: No
  Sender: FDA-Public Use
  Company Number: US-ASTRAZENECA-2012SE01474

PATIENT
  Sex: Female

DRUGS (1)
  1. FASLODEX [Suspect]
     Indication: BREAST CANCER METASTATIC
     Route: 030
     Dates: start: 20110401

REACTIONS (7)
  - DYSPNOEA [None]
  - DIZZINESS [None]
  - CONSTIPATION [None]
  - FATIGUE [None]
  - MEMORY IMPAIRMENT [None]
  - IRRITABILITY [None]
  - MOOD SWINGS [None]
